FAERS Safety Report 14555087 (Version 1)
Quarter: 2018Q1

REPORT INFORMATION
  Report Type: Spontaneous
  Country: DE (occurrence: DE)
  Receive Date: 20180220
  Receipt Date: 20180220
  Transmission Date: 20180509
  Serious: Yes (Other)
  Sender: FDA-Public Use
  Company Number: DE-BAUSCH-BL-2018-004509

PATIENT
  Sex: Female

DRUGS (2)
  1. DOXYCYCLIN AL [Suspect]
     Active Substance: DOXYCYCLINE HYCLATE
     Indication: NONINFECTIVE OOPHORITIS
     Dosage: FEW DAY(S)
     Route: 048
     Dates: start: 201801, end: 20180128
  2. METRONIDAZOLE. [Suspect]
     Active Substance: METRONIDAZOLE
     Indication: NONINFECTIVE OOPHORITIS
     Dosage: FEW DAYS
     Route: 048
     Dates: start: 201801, end: 20180128

REACTIONS (10)
  - Respiratory depth decreased [Unknown]
  - Vomiting [Unknown]
  - Sleep disorder [Unknown]
  - Flushing [Unknown]
  - Respiratory arrest [Unknown]
  - Panic attack [Unknown]
  - Anxiety [Unknown]
  - Dysgeusia [Unknown]
  - Feeling cold [Unknown]
  - Palpitations [Unknown]

NARRATIVE: CASE EVENT DATE: 201801
